FAERS Safety Report 10232290 (Version 1)
Quarter: 2014Q2

REPORT INFORMATION
  Report Type: Spontaneous
  Country: GB (occurrence: GB)
  Receive Date: 20140612
  Receipt Date: 20140612
  Transmission Date: 20141212
  Serious: Yes (Death, Other)
  Sender: FDA-Public Use
  Company Number: GB-DRREDDYS-GER/UKI/14/0041006

PATIENT
  Age: 51 Year
  Sex: Female

DRUGS (1)
  1. SERTRALINE [Suspect]
     Indication: ANXIETY
     Route: 048
     Dates: start: 20130921, end: 20130924

REACTIONS (5)
  - Aphasia [Not Recovered/Not Resolved]
  - Catatonia [Recovering/Resolving]
  - Drug ineffective [Unknown]
  - Movement disorder [Not Recovered/Not Resolved]
  - Completed suicide [Fatal]
